FAERS Safety Report 16631213 (Version 4)
Quarter: 2020Q1

REPORT INFORMATION
  Report Type: Spontaneous
  Country: US (occurrence: US)
  Receive Date: 20190725
  Receipt Date: 20200305
  Transmission Date: 20200409
  Serious: No
  Sender: FDA-Public Use
  Company Number: US-PFIZER INC-2018379581

PATIENT
  Age: 71 Year
  Sex: Female

DRUGS (1)
  1. LYRICA [Suspect]
     Active Substance: PREGABALIN
     Dosage: 75 MG, UNK

REACTIONS (6)
  - Gait disturbance [Unknown]
  - Neuralgia [Unknown]
  - Pain in extremity [Unknown]
  - Insomnia [Unknown]
  - Pain [Unknown]
  - Joint range of motion decreased [Unknown]
